FAERS Safety Report 4569783-4 (Version None)
Quarter: 2005Q1

REPORT INFORMATION
  Report Type: 
  Country: None (occurrence: None)
  Receive Date: 20050131
  Receipt Date: 20050117
  Transmission Date: 20050727
  Serious: Yes (Other)
  Sender: FDA-Public Use
  Company Number: 200510254BCC

PATIENT
  Age: 81 Year
  Sex: Female
  Weight: 77.1115 kg

DRUGS (10)
  1. ALEVE (CAPLET) [Suspect]
     Indication: ARTHRALGIA
     Dosage: 220 MG, BID, ORAL
     Route: 048
     Dates: end: 20041220
  2. COENZYME Q10 [Concomitant]
  3. HORMONE REPLACEMENT THERAPY [Concomitant]
  4. VITAMINS NOS [Concomitant]
  5. FLAX SEED OIL [Concomitant]
  6. CALCIUM GLUCONATE [Concomitant]
  7. OMEGA 3 [Concomitant]
  8. SYNTHROID [Concomitant]
  9. CALCITRIOL [Concomitant]
  10. PLAVIX [Concomitant]

REACTIONS (1)
  - TRANSIENT ISCHAEMIC ATTACK [None]
